FAERS Safety Report 20062236 (Version 1)
Quarter: 2021Q4

REPORT INFORMATION
  Report Type: Report from Study
  Country: RO (occurrence: RO)
  Receive Date: 20211112
  Receipt Date: 20211112
  Transmission Date: 20220303
  Serious: Yes (Hospitalization)
  Sender: FDA-Public Use
  Company Number: RO-ABBVIE-21K-135-4154822-00

PATIENT
  Age: 61 Year
  Sex: Female

DRUGS (2)
  1. DASABUVIR [Suspect]
     Active Substance: DASABUVIR
     Indication: Chronic hepatitis C
     Route: 048
     Dates: start: 20210513, end: 20210804
  2. OMBITASVIR\PARITAPREVIR\RITONAVIR [Suspect]
     Active Substance: OMBITASVIR\PARITAPREVIR\RITONAVIR
     Indication: Chronic hepatitis C
     Route: 048
     Dates: start: 20210513, end: 20210804

REACTIONS (2)
  - COVID-19 [Recovered/Resolved]
  - Traumatic lung injury [Not Recovered/Not Resolved]

NARRATIVE: CASE EVENT DATE: 20211001
